FAERS Safety Report 11126912 (Version 1)
Quarter: 2015Q2

REPORT INFORMATION
  Report Type: Spontaneous
  Country: US (occurrence: US)
  Receive Date: 20150520
  Receipt Date: 20150520
  Transmission Date: 20150821
  Serious: No
  Sender: FDA-Public Use
  Company Number: US-B.I. PHARMACEUTICALS,INC./RIDGEFIELD-2015-BI-25092BP

PATIENT
  Sex: Male

DRUGS (1)
  1. SIMETHICONE [Suspect]
     Active Substance: DIMETHICONE\SILICON DIOXIDE\SIMETHICONE
     Indication: FLATULENCE
     Route: 048
     Dates: start: 20150507

REACTIONS (2)
  - Product physical consistency issue [Recovered/Resolved]
  - Medication residue present [Recovered/Resolved]

NARRATIVE: CASE EVENT DATE: 20150507
